FAERS Safety Report 4777291-0 (Version None)
Quarter: 2005Q3

REPORT INFORMATION
  Report Type: 
  Country: None (occurrence: None)
  Receive Date: 20050923
  Receipt Date: 20050721
  Transmission Date: 20060218
  Serious: Yes (Other)
  Sender: FDA-Public Use
  Company Number: PHEH2005US08107

PATIENT
  Age: 65 Year
  Sex: Female
  Weight: 67 kg

DRUGS (2)
  1. ZOMETA [Suspect]
     Indication: BREAST CANCER METASTATIC
     Dosage: 4 MG IV MONTHY
     Route: 042
     Dates: start: 20020401, end: 20050501
  2. TAMOXIFEN CITRATE [Concomitant]
     Dates: start: 20000101

REACTIONS (10)
  - ASEPTIC NECROSIS BONE [None]
  - BONE DEBRIDEMENT [None]
  - DENTAL ALVEOLAR ANOMALY [None]
  - FATIGUE [None]
  - IMPAIRED HEALING [None]
  - MUSCULOSKELETAL DISCOMFORT [None]
  - ORAL PAIN [None]
  - ORAL SOFT TISSUE DISORDER [None]
  - SEQUESTRECTOMY [None]
  - TOOTH EXTRACTION [None]
